FAERS Safety Report 5361581-7 (Version None)
Quarter: 2007Q2

REPORT INFORMATION
  Report Type: 
  Country: None (occurrence: None)
  Receive Date: 20070619
  Receipt Date: 20070608
  Transmission Date: 20071010
  Serious: Yes (Other)
  Sender: FDA-Public Use
  Company Number: PHBS2007JP05648

PATIENT
  Age: 27 Year
  Sex: Female

DRUGS (5)
  1. GLEEVEC [Suspect]
     Indication: CHRONIC MYELOID LEUKAEMIA
     Dates: start: 20050501, end: 20060201
  2. HEMATOPOETIC PROGENITOR CELLS HUMAN [Concomitant]
     Dosage: ALLOGENIC HEMATOPOIETIC STEM CELLS (AHSC)
     Route: 065
     Dates: start: 20060201
  3. CYCLOSPORINE [Concomitant]
     Route: 065
  4. COMPARATOR TACROLIMUS [Suspect]
     Route: 065
  5. ITRACONAZOLE [Suspect]
     Indication: PROPHYLAXIS
     Dosage: 100 MG, QD
     Route: 065
     Dates: start: 20060601

REACTIONS (7)
  - DRUG LEVEL INCREASED [None]
  - GRAFT VERSUS HOST DISEASE [None]
  - LEUKOPENIA [None]
  - LIVER DISORDER [None]
  - NAUSEA [None]
  - TREMOR [None]
  - VOMITING [None]
